FAERS Safety Report 6833972-6 (Version None)
Quarter: 2010Q3

REPORT INFORMATION
  Report Type: 
  Country: None (occurrence: None)
  Receive Date: 20100712
  Receipt Date: 20070405
  Transmission Date: 20110219
  Serious: No
  Sender: FDA-Public Use
  Company Number: US-PFIZER INC-2007028763

PATIENT
  Sex: Female
  Weight: 68.04 kg

DRUGS (5)
  1. CHANTIX [Suspect]
     Indication: SMOKING CESSATION THERAPY
     Dates: start: 20070331
  2. ANALGESICS [Interacting]
  3. LORTAB [Concomitant]
  4. METHADONE HCL [Concomitant]
  5. DEXTROAMPHETAMINE [Concomitant]

REACTIONS (3)
  - DRUG INEFFECTIVE [None]
  - DRUG INTERACTION [None]
  - PAIN [None]
